FAERS Safety Report 7546353-7 (Version None)
Quarter: 2011Q2

REPORT INFORMATION
  Report Type: 
  Country: None (occurrence: None)
  Receive Date: 20110607
  Receipt Date: 20110523
  Transmission Date: 20111010
  Serious: Yes (Hospitalization)
  Sender: FDA-Public Use
  Company Number: IT-1186377

PATIENT
  Age: 38 Year
  Sex: Male

DRUGS (2)
  1. NEVANAC [Suspect]
     Dosage: 3 GTT QD OPHTHALMIC
     Route: 047
     Dates: start: 20110301, end: 20110513
  2. DICLOFENAC SODIUM [Concomitant]

REACTIONS (2)
  - NEUTROPENIA [None]
  - PANCYTOPENIA [None]
